FAERS Safety Report 5151888-0 (Version None)
Quarter: 2006Q4

REPORT INFORMATION
  Report Type: 
  Country: None (occurrence: None)
  Receive Date: 20061108
  Receipt Date: 20061030
  Transmission Date: 20070319
  Serious: Yes (Other)
  Sender: FDA-Public Use
  Company Number: HQWYE408107SEP06

PATIENT
  Age: 51 Year
  Sex: Female

DRUGS (3)
  1. RAPAMUNE [Suspect]
     Indication: PROPHYLAXIS AGAINST TRANSPLANT REJECTION
     Dosage: 3 MG 1X PER 1 DAY ORAL
     Route: 048
     Dates: start: 20040217
  2. AZATHIOPRINE [Concomitant]
  3. MEPREDNJISONE          (MEPREDNISONE) [Concomitant]

REACTIONS (3)
  - BRONCHIAL CARCINOMA [None]
  - IMMUNOSUPPRESSION [None]
  - PLEURAL NEOPLASM [None]
